FAERS Safety Report 15730024 (Version 1)
Quarter: 2018Q4

REPORT INFORMATION
  Report Type: Spontaneous
  Country: TN (occurrence: TN)
  Receive Date: 20181217
  Receipt Date: 20181217
  Transmission Date: 20190205
  Serious: Yes (Hospitalization, Other)
  Sender: FDA-Public Use
  Company Number: TN-SANIK-2018SA339211AA

PATIENT
  Age: 64 Year
  Sex: Female

DRUGS (3)
  1. DEXAMETHASONE. [Concomitant]
     Active Substance: DEXAMETHASONE
     Indication: CENTRAL NERVOUS SYSTEM VASCULITIS
     Dosage: 10 MG, QID
  2. CLONAZEPAM. [Concomitant]
     Active Substance: CLONAZEPAM
  3. CEFOTAXIME SODIUM [Suspect]
     Active Substance: CEFOTAXIME SODIUM
     Indication: MENINGITIS PNEUMOCOCCAL
     Dosage: 200 MG/KG, QD

REACTIONS (5)
  - Central nervous system vasculitis [Recovered/Resolved]
  - Pyrexia [Recovered/Resolved]
  - Brain injury [Recovered/Resolved]
  - Seizure [Recovered/Resolved]
  - Hemiplegia [Recovered/Resolved]
